FAERS Safety Report 4980204-X (Version None)
Quarter: 2006Q2

REPORT INFORMATION
  Report Type: 
  Country: None (occurrence: None)
  Receive Date: 20060424
  Receipt Date: 20060223
  Transmission Date: 20061013
  Serious: Yes (Other)
  Sender: FDA-Public Use
  Company Number: PHEH2006US02900

PATIENT
  Age: 56 Year
  Sex: Male
  Weight: 111.11 kg

DRUGS (30)
  1. ADRIAMYCIN PFS [Concomitant]
     Indication: MULTIPLE MYELOMA
     Dosage: 80MG/76MG OVER 96 HRS
     Dates: start: 20020601, end: 20031101
  2. DEXAMETHASONE [Concomitant]
     Indication: MULTIPLE MYELOMA
     Dosage: VARIED DOSES
     Dates: start: 19970101
  3. INVESTIGATIONAL DRUG [Concomitant]
     Dates: start: 20040201
  4. THALIDOMIDE [Concomitant]
     Dosage: VARIED DOSES
  5. BIAXIN [Concomitant]
  6. COLCHICINE [Concomitant]
     Indication: GOUT
  7. RITALIN [Concomitant]
  8. LEVAQUIN [Concomitant]
  9. AUGMENTIN '125' [Concomitant]
  10. ZIAC [Concomitant]
     Dosage: 2.5 MG, UNK
  11. XANAX [Concomitant]
     Indication: MUSCLE SPASMS
     Dosage: 0.25 MG, UNK
  12. POTASSIUM CHLORIDE [Concomitant]
     Dosage: 10 MEQ WITH LASIX
  13. LASIX [Concomitant]
     Dosage: 40 MG, PRN
  14. COUMADIN [Concomitant]
     Dosage: 3MG 3XWK ALTERNATE  WITH 4MG  4XWK
  15. ZOLOFT [Concomitant]
     Indication: DEPRESSION
     Dosage: 50 MG, UNK
  16. VITAMIN B6 [Concomitant]
     Indication: VITAMIN SUPPLEMENTATION
     Dosage: 100 MG, UNK
  17. VITAMIN B COMPLEX CAP [Concomitant]
     Indication: VITAMIN SUPPLEMENTATION
     Dosage: UNK, QD
  18. ALLOPURINOL [Concomitant]
     Indication: GOUT
     Dosage: 100 MG, UNK
  19. MS CONTIN [Concomitant]
     Indication: PAIN
     Dosage: 60MG QAM/ 30MG QPM
  20. ENALAPRIL MALEATE [Concomitant]
     Dosage: 10 MG, QOD
  21. TENORMIN [Concomitant]
     Indication: HYPERTENSION
     Dosage: 50 MG, QD
  22. ZANTAC [Concomitant]
     Indication: HYPERCHLORHYDRIA
     Dosage: 150 MG, UNK
  23. AREDIA [Suspect]
     Indication: MULTIPLE MYELOMA
     Dosage: 90 MG, QMO
     Dates: start: 19970317, end: 20020301
  24. AREDIA [Suspect]
     Dosage: 90 MG, QMO
     Dates: start: 20020501, end: 20020601
  25. AREDIA [Suspect]
     Dosage: 60 MG, QMO
     Dates: start: 20040201, end: 20040801
  26. ZOMETA [Suspect]
     Indication: MULTIPLE MYELOMA
     Dosage: 4 MG, ONCE/SINGLE
     Route: 042
     Dates: start: 20020424, end: 20020424
  27. ZOMETA [Suspect]
     Dosage: 4 MG, QMO
     Dates: start: 20020701, end: 20040101
  28. PREDNISONE [Concomitant]
  29. VINCRISTINE [Concomitant]
     Indication: MULTIPLE MYELOMA
     Dosage: 1MG OVER 96 HOURS
     Dates: start: 20020601, end: 20031101
  30. ONCOVIN [Concomitant]

REACTIONS (4)
  - JAW DISORDER [None]
  - JAW OPERATION [None]
  - PAIN IN JAW [None]
  - POST PROCEDURAL COMPLICATION [None]
